FAERS Safety Report 7792637-7 (Version None)
Quarter: 2011Q3

REPORT INFORMATION
  Report Type: 
  Country: None (occurrence: None)
  Receive Date: 20110929
  Receipt Date: 20110920
  Transmission Date: 20111222
  Serious: Yes (Other)
  Sender: FDA-Public Use
  Company Number: AUR-APL-2011-04973

PATIENT
  Age: 32 Year
  Sex: Female

DRUGS (1)
  1. PAROXETINE HCL [Suspect]
     Indication: INSOMNIA

REACTIONS (2)
  - QUALITY OF LIFE DECREASED [None]
  - PSYCHIATRIC SYMPTOM [None]
